FAERS Safety Report 6783648-9 (Version None)
Quarter: 2010Q2

REPORT INFORMATION
  Report Type: 
  Country: None (occurrence: None)
  Receive Date: 20100622
  Receipt Date: 20100611
  Transmission Date: 20101027
  Serious: Yes (Death, Hospitalization)
  Sender: FDA-Public Use
  Company Number: US-ROCHE-703029

PATIENT
  Sex: Male
  Weight: 70.3 kg

DRUGS (2)
  1. CAPECITABINE [Suspect]
     Indication: GASTRIC CANCER
     Route: 048
     Dates: end: 20100412
  2. OXALIPLATIN [Suspect]
     Indication: GASTRIC CANCER
     Dosage: DOSE: 145
     Route: 042
     Dates: start: 20100316

REACTIONS (3)
  - ACUTE RESPIRATORY DISTRESS SYNDROME [None]
  - COLITIS [None]
  - LARGE INTESTINE PERFORATION [None]
